FAERS Safety Report 7425689-4 (Version None)
Quarter: 2011Q2

REPORT INFORMATION
  Report Type: 
  Country: None (occurrence: None)
  Receive Date: 20110420
  Receipt Date: 20110406
  Transmission Date: 20111010
  Serious: Yes (Life-Threatening, Hospitalization, Other)
  Sender: FDA-Public Use
  Company Number: US-ELI_LILLY_AND_COMPANY-US201103001147

PATIENT
  Sex: Female

DRUGS (8)
  1. ASPIRIN [Concomitant]
     Dosage: 81 MG, UNK
  2. SIMVASTATIN [Concomitant]
  3. HYDROCHLOROTHIAZIDE [Concomitant]
  4. ANTIHYPERTENSIVES [Concomitant]
     Indication: BLOOD PRESSURE
  5. FORTEO [Suspect]
     Indication: OSTEOPOROSIS
     Dosage: 20 UG, DAILY (1/D)
     Route: 065
     Dates: start: 20110131, end: 20110226
  6. SYNTHROID [Concomitant]
     Indication: THYROID DISORDER
  7. LISINOPRIL  /USA/ [Concomitant]
  8. CARVEDILOL [Concomitant]
     Indication: CARDIAC DISORDER

REACTIONS (10)
  - ASTHENIA [None]
  - CARDIAC ARREST [None]
  - ATRIAL FIBRILLATION [None]
  - BLOOD POTASSIUM DECREASED [None]
  - FEAR [None]
  - FEELING ABNORMAL [None]
  - MALAISE [None]
  - DIZZINESS [None]
  - INFUSION SITE PAIN [None]
  - BLOOD MAGNESIUM DECREASED [None]
